FAERS Safety Report 8334816 (Version 3)
Quarter: 2014Q4

REPORT INFORMATION
  Report Type: Spontaneous
  Country: AT (occurrence: AT)
  Receive Date: 20120112
  Receipt Date: 20141210
  Transmission Date: 20150529
  Serious: Yes (Death, Life-Threatening, Hospitalization, Other)
  Sender: FDA-Public Use
  Company Number: AT-B.I. PHARMACEUTICALS,INC./RIDGEFIELD-2012-AP-00013AP

PATIENT
  Age: 79 Year
  Sex: Female
  Weight: 60 kg

DRUGS (1)
  1. PRADAXA [Suspect]
     Active Substance: DABIGATRAN ETEXILATE MESYLATE
     Indication: ATRIAL FIBRILLATION
     Dosage: 220 MG
     Route: 048
     Dates: start: 201101, end: 201108

REACTIONS (15)
  - Multi-organ failure [Fatal]
  - Large intestine perforation [Unknown]
  - Post procedural haemorrhage [Unknown]
  - Hyperbilirubinaemia [Unknown]
  - Shock haemorrhagic [Fatal]
  - Disseminated intravascular coagulation [Fatal]
  - Colostomy [Unknown]
  - Immunodeficiency [Unknown]
  - Pneumonia [Unknown]
  - Laparotomy [Unknown]
  - Septic shock [Fatal]
  - Pneumonia [Unknown]
  - Pleural effusion [Unknown]
  - Aspiration [Unknown]
  - Colitis ulcerative [Unknown]

NARRATIVE: CASE EVENT DATE: 20110831
